FAERS Safety Report 24231232 (Version 1)
Quarter: 2024Q3

REPORT INFORMATION
  Report Type: Spontaneous
  Country: GB (occurrence: GB)
  Receive Date: 20240821
  Receipt Date: 20240821
  Transmission Date: 20241017
  Serious: Yes (Disabling, Other)
  Sender: TEVA
  Company Number: None

PATIENT
  Age: 25 Year
  Sex: Male
  Weight: 78 kg

DRUGS (2)
  1. OLANZAPINE [Suspect]
     Active Substance: OLANZAPINE
     Dosage: TEVA UK
     Route: 065
     Dates: start: 20211217, end: 20220301
  2. OLANZAPINE [Suspect]
     Active Substance: OLANZAPINE
     Indication: Adverse drug reaction
     Dosage: TEVA UK
     Route: 065
     Dates: start: 20211217, end: 20220301

REACTIONS (3)
  - Infertility male [Not Recovered/Not Resolved]
  - Medication error [Unknown]
  - Erectile dysfunction [Not Recovered/Not Resolved]

NARRATIVE: CASE EVENT DATE: 20220101
